FAERS Safety Report 18555416 (Version 2)
Quarter: 2021Q1

REPORT INFORMATION
  Report Type: Spontaneous
  Country: US (occurrence: US)
  Receive Date: 20201127
  Receipt Date: 20210105
  Transmission Date: 20210419
  Serious: No
  Sender: FDA-Public Use
  Company Number: NVSC2020US311354

PATIENT
  Sex: Male

DRUGS (2)
  1. COSENTYX [Suspect]
     Active Substance: SECUKINUMAB
     Indication: PRODUCT USED FOR UNKNOWN INDICATION
     Dosage: UNK UNK, UNKNOWN
     Route: 065
  2. RISANKIZUMAB [Suspect]
     Active Substance: RISANKIZUMAB
     Indication: PSORIASIS
     Dosage: UNK UNK, UNKNOWN
     Route: 058
     Dates: start: 201910

REACTIONS (15)
  - Nasopharyngitis [Unknown]
  - Joint injury [Unknown]
  - Pyrexia [Unknown]
  - Dry skin [Recovering/Resolving]
  - Blood pressure increased [Unknown]
  - Arthropathy [Unknown]
  - Pruritus [Unknown]
  - COVID-19 [Recovered/Resolved]
  - Skin lesion [Unknown]
  - Palpitations [Unknown]
  - Rash [Unknown]
  - Rhinorrhoea [Unknown]
  - Macule [Unknown]
  - Pain [Unknown]
  - Psoriasis [Recovered/Resolved]

NARRATIVE: CASE EVENT DATE: 2020
